FAERS Safety Report 8083511-X (Version None)
Quarter: 2012Q1

REPORT INFORMATION
  Report Type: 
  Country: None (occurrence: None)
  Receive Date: 20120127
  Receipt Date: 20110201
  Transmission Date: 20120608
  Serious: No
  Sender: FDA-Public Use
  Company Number: US-ABBOTT-11P-163-0702735-00

PATIENT
  Sex: Male
  Weight: 68.1 kg

DRUGS (3)
  1. CELEBREX [Concomitant]
     Indication: ANKYLOSING SPONDYLITIS
  2. HUMIRA [Suspect]
     Indication: ANKYLOSING SPONDYLITIS
     Dosage: HELD DOSE ON 31 JAN 2011 DUE TO EVENTS
     Dates: start: 20101201
  3. PENTAZA [Concomitant]
     Indication: CROHN'S DISEASE

REACTIONS (4)
  - NASOPHARYNGITIS [None]
  - BODY TEMPERATURE INCREASED [None]
  - COUGH [None]
  - MALAISE [None]
